FAERS Safety Report 8547741-2 (Version None)
Quarter: 2012Q3

REPORT INFORMATION
  Report Type: 
  Country: None (occurrence: None)
  Receive Date: 20120727
  Receipt Date: 20120508
  Transmission Date: 20120928
  Serious: No
  Sender: FDA-Public Use
  Company Number: US-ASTRAZENECA-2012SE29737

PATIENT
  Age: 38 Year
  Sex: Female
  Weight: 74.8 kg

DRUGS (5)
  1. SEROQUEL XR [Suspect]
     Indication: BIPOLAR DISORDER
     Route: 048
     Dates: start: 20090101
  2. KLONOPIN [Concomitant]
  3. METOPROLOL TARTRATE [Concomitant]
  4. ZOLOFT [Concomitant]
  5. LEXAPRO [Concomitant]

REACTIONS (5)
  - INTENTIONAL DRUG MISUSE [None]
  - MOOD SWINGS [None]
  - INSOMNIA [None]
  - PANIC DISORDER [None]
  - NAUSEA [None]
